FAERS Safety Report 14352477 (Version 2)
Quarter: 2018Q1

REPORT INFORMATION
  Report Type: Report from Study
  Country: US (occurrence: US)
  Receive Date: 20180104
  Receipt Date: 20180212
  Transmission Date: 20180509
  Serious: Yes (Hospitalization)
  Sender: FDA-Public Use
  Company Number: US-ACTELION-A-US2016-139428

PATIENT
  Age: 35 Year
  Sex: Female

DRUGS (3)
  1. OPSUMIT [Suspect]
     Active Substance: MACITENTAN
     Indication: PULMONARY ARTERIAL HYPERTENSION
     Dosage: 10 MG, QD
     Route: 048
     Dates: start: 20150727
  2. REMODULIN [Concomitant]
     Active Substance: TREPROSTINIL
     Dosage: 50 NKM, CONT INFUS
     Route: 042
  3. WARFARIN [Concomitant]
     Active Substance: WARFARIN

REACTIONS (20)
  - Haemorrhage [Recovered/Resolved]
  - Bacteraemia [Recovered/Resolved]
  - Drug level below therapeutic [Unknown]
  - Pyrexia [Recovered/Resolved with Sequelae]
  - Vascular pseudoaneurysm [Recovered/Resolved]
  - Back pain [Not Recovered/Not Resolved]
  - Splenic infarction [Unknown]
  - Drug dose omission [Unknown]
  - Vomiting [Unknown]
  - Device related infection [Recovered/Resolved]
  - Abdominal pain [Recovered/Resolved]
  - Viral infection [Recovered/Resolved with Sequelae]
  - Hypertension [Not Recovered/Not Resolved]
  - Malaise [Unknown]
  - Myalgia [Recovered/Resolved with Sequelae]
  - Nausea [Unknown]
  - Bacterial infection [Unknown]
  - Endotracheal intubation [Recovered/Resolved]
  - Dyspnoea [Unknown]
  - Raynaud^s phenomenon [Unknown]

NARRATIVE: CASE EVENT DATE: 20150816
